FAERS Safety Report 4815509-6 (Version None)
Quarter: 2005Q4

REPORT INFORMATION
  Report Type: 
  Country: None (occurrence: None)
  Receive Date: 20051027
  Receipt Date: 20051014
  Transmission Date: 20060501
  Serious: Yes (Hospitalization)
  Sender: FDA-Public Use
  Company Number: HQWYE042914OCT05

PATIENT
  Age: 66 Year
  Sex: Male

DRUGS (8)
  1. CORDARONE [Suspect]
     Indication: ATRIAL FIBRILLATION
     Dosage: 1 UNIT 1X PER 1 DAY ORAL
     Route: 048
     Dates: end: 20050101
  2. ISOSORBIDE DINITRATE [Concomitant]
  3. TENORMIN [Concomitant]
  4. ENAP (ENALAPRIL) [Concomitant]
  5. WARFARIN SODIUM [Concomitant]
  6. PLENDIL [Concomitant]
  7. MOLSIHEXAL (MOLSIDOMINE) [Concomitant]
  8. INSULIN [Concomitant]

REACTIONS (2)
  - CARDIAC DISORDER [None]
  - HYPERTHYROIDISM [None]
